FAERS Safety Report 5017658-9 (Version None)
Quarter: 2006Q2

REPORT INFORMATION
  Report Type: 
  Country: None (occurrence: None)
  Receive Date: 20060605
  Receipt Date: 20060424
  Transmission Date: 20061013
  Serious: Yes (Other)
  Sender: FDA-Public Use
  Company Number: BR-ROCHE-445740

PATIENT
  Age: 28 Year
  Sex: Female
  Weight: 57 kg

DRUGS (4)
  1. ROACUTAN [Suspect]
     Indication: ACNE
     Route: 048
     Dates: start: 20051115, end: 20060202
  2. ROACUTAN [Suspect]
     Route: 048
     Dates: start: 20060302, end: 20060306
  3. DIMINUT [Concomitant]
     Indication: CONTRACEPTION
     Route: 048
     Dates: start: 20051115, end: 20060202
  4. DERMAVITE [Concomitant]
     Route: 048
     Dates: end: 20060202

REACTIONS (3)
  - NO ADVERSE EFFECT [None]
  - PREGNANCY [None]
  - PREGNANCY ON ORAL CONTRACEPTIVE [None]
